FAERS Safety Report 12514906 (Version 4)
Quarter: 2020Q3

REPORT INFORMATION
  Report Type: Spontaneous
  Country: US (occurrence: US)
  Receive Date: 20160630
  Receipt Date: 20200813
  Transmission Date: 20201102
  Serious: Yes (Hospitalization)
  Sender: FDA-Public Use
  Company Number: US-JNJFOC-20160523308

PATIENT
  Age: 68 Year
  Sex: Male
  Weight: 102.88 kg

DRUGS (4)
  1. XARELTO [Suspect]
     Active Substance: RIVAROXABAN
     Indication: DEEP VEIN THROMBOSIS
     Route: 048
     Dates: start: 20151013, end: 20151019
  2. ASPIRIN. [Suspect]
     Active Substance: ASPIRIN
     Indication: DEEP VEIN THROMBOSIS
  3. XARELTO [Suspect]
     Active Substance: RIVAROXABAN
     Indication: PULMONARY EMBOLISM
     Route: 048
     Dates: start: 20151003, end: 20151015
  4. ASPIRIN. [Suspect]
     Active Substance: ASPIRIN
     Indication: PULMONARY EMBOLISM
     Route: 065
     Dates: start: 201510

REACTIONS (1)
  - Gastrointestinal haemorrhage [Recovering/Resolving]

NARRATIVE: CASE EVENT DATE: 20151019
